FAERS Safety Report 17849507 (Version 1)
Quarter: 2020Q2

REPORT INFORMATION
  Report Type: Spontaneous
  Country: US (occurrence: US)
  Receive Date: 20200601
  Receipt Date: 20200601
  Transmission Date: 20200714
  Serious: No
  Sender: FDA-Public Use
  Company Number: None

PATIENT
  Age: 40 Year
  Sex: Female

DRUGS (1)
  1. XELJANZ [Suspect]
     Active Substance: TOFACITINIB CITRATE
     Indication: RHEUMATOID ARTHRITIS
     Route: 048
     Dates: start: 20200515, end: 20200527

REACTIONS (4)
  - Therapy cessation [None]
  - Pruritus [None]
  - Swelling [None]
  - Bedridden [None]

NARRATIVE: CASE EVENT DATE: 20200527
